FAERS Safety Report 14969708 (Version 2)
Quarter: 2019Q4

REPORT INFORMATION
  Report Type: Spontaneous
  Country: US (occurrence: US)
  Receive Date: 20180604
  Receipt Date: 20191218
  Transmission Date: 20200122
  Serious: Yes (Hospitalization)
  Sender: FDA-Public Use
  Company Number: US-JNJFOC-20180601611

PATIENT
  Age: 46 Year
  Sex: Female
  Weight: 144 kg

DRUGS (2)
  1. INVOKANA [Suspect]
     Active Substance: CANAGLIFLOZIN
     Route: 048
     Dates: start: 20171103
  2. INVOKANA [Suspect]
     Active Substance: CANAGLIFLOZIN
     Indication: TYPE 2 DIABETES MELLITUS
     Route: 048

REACTIONS (3)
  - Osteomyelitis [Recovering/Resolving]
  - Toe amputation [Unknown]
  - Diabetic foot infection [Recovered/Resolved]

NARRATIVE: CASE EVENT DATE: 201708
